FAERS Safety Report 4985802-5 (Version None)
Quarter: 2006Q2

REPORT INFORMATION
  Report Type: 
  Country: None (occurrence: None)
  Receive Date: 20060428
  Receipt Date: 20051109
  Transmission Date: 20061013
  Serious: Yes (Disabling)
  Sender: FDA-Public Use
  Company Number: US-GLAXOSMITHKLINE-A0581828A

PATIENT
  Age: 51 Year
  Sex: Female

DRUGS (1)
  1. AMERGE [Suspect]
     Dosage: 2.5MG PER DAY
     Route: 048
     Dates: start: 20051001

REACTIONS (1)
  - DEPRESSION [None]
